FAERS Safety Report 8211032-X (Version None)
Quarter: 2012Q1

REPORT INFORMATION
  Report Type: 
  Country: None (occurrence: None)
  Receive Date: 20120315
  Receipt Date: 20120307
  Transmission Date: 20120608
  Serious: Yes (Other)
  Sender: FDA-Public Use
  Company Number: PHFR2011GB007289

PATIENT
  Age: 8 Year
  Sex: Female

DRUGS (5)
  1. SAIZEN [Suspect]
     Indication: TURNER'S SYNDROME
     Dosage: 0.7 MG, QD
     Route: 058
     Dates: start: 20111014
  2. TRIMETHOPRIM [Concomitant]
  3. RITALIN [Suspect]
     Indication: ATTENTION DEFICIT/HYPERACTIVITY DISORDER
     Dosage: 10 MG, BID
  4. RITALIN [Suspect]
     Dosage: 15 MG, BID
  5. CEPHALEXIN [Concomitant]

REACTIONS (1)
  - SUICIDAL IDEATION [None]
